FAERS Safety Report 4490802-8 (Version None)
Quarter: 2004Q4

REPORT INFORMATION
  Report Type: 
  Country: None (occurrence: None)
  Receive Date: 20041102
  Receipt Date: 20041008
  Transmission Date: 20050328
  Serious: Yes (Disabling)
  Sender: FDA-Public Use
  Company Number: NL-ROCHE-383049

PATIENT
  Age: 55 Year
  Sex: Male
  Weight: 108 kg

DRUGS (5)
  1. FUZEON [Suspect]
     Indication: HIV INFECTION
     Route: 058
     Dates: start: 20040303, end: 20040930
  2. KALETRA [Concomitant]
     Route: 048
     Dates: start: 20020126
  3. TENOFOVIR [Concomitant]
     Route: 048
     Dates: start: 20040302
  4. DIDANOSINE [Concomitant]
     Route: 048
     Dates: start: 20040302
  5. COTRIMOXAZOL [Concomitant]
     Route: 048
     Dates: start: 19990615

REACTIONS (3)
  - DYSPNOEA [None]
  - MITRAL VALVE INCOMPETENCE [None]
  - OEDEMA PERIPHERAL [None]
